FAERS Safety Report 6676458-4 (Version None)
Quarter: 2010Q2

REPORT INFORMATION
  Report Type: 
  Country: None (occurrence: None)
  Receive Date: 20100412
  Receipt Date: 20100406
  Transmission Date: 20101027
  Serious: Yes (Life-Threatening, Hospitalization, Other)
  Sender: FDA-Public Use
  Company Number: PHHO2010PE04645

PATIENT
  Sex: Female
  Weight: 73 kg

DRUGS (12)
  1. BLINDED ALISKIREN ALI+TAB+CF [Suspect]
     Indication: CARDIAC FAILURE
     Dosage: CODE NOT BROKEN
     Route: 048
     Dates: start: 20100124, end: 20100323
  2. BLINDED ENALAPRIL COMP-ENA+ [Suspect]
     Indication: CARDIAC FAILURE
     Dosage: CODE NOT BROKEN
     Route: 048
     Dates: start: 20100124, end: 20100323
  3. BLINDED NO TREATMENT RECEIVED NOMED [Suspect]
     Indication: CARDIAC FAILURE
     Dosage: CODE NOT BROKEN
     Route: 048
     Dates: start: 20100124, end: 20100323
  4. COMPARATOR ENALAPRIL [Suspect]
     Indication: CARDIAC FAILURE
     Dosage: 10 MG, BID
     Route: 048
     Dates: start: 20100127
  5. ALISKIREN [Suspect]
     Indication: CARDIAC FAILURE
     Dosage: 300 MG, QD
     Dates: start: 20100217, end: 20100323
  6. CLOPIDOGREL [Concomitant]
  7. OMEPRAZOLE [Concomitant]
     Indication: PROPHYLAXIS
     Dosage: UNK
     Dates: start: 20100325
  8. CALCIUM GLUCONATE [Concomitant]
     Indication: BLOOD CALCIUM DECREASED
     Dosage: UNK
     Dates: start: 20100325, end: 20100325
  9. ASPIRIN [Concomitant]
  10. METFORMIN HCL [Concomitant]
     Indication: DIABETES MELLITUS
  11. FUROSEMIDE [Concomitant]
     Indication: CARDIAC FAILURE
  12. RANITIDINE HCL [Concomitant]

REACTIONS (14)
  - CATHETERISATION VENOUS [None]
  - DEEP VEIN THROMBOSIS [None]
  - DIZZINESS [None]
  - HYPOTENSION [None]
  - INFECTED SKIN ULCER [None]
  - LOCALISED OEDEMA [None]
  - MALAISE [None]
  - NAUSEA [None]
  - NECROTISING FASCIITIS [None]
  - OEDEMA PERIPHERAL [None]
  - SEPSIS [None]
  - SEPTIC SHOCK [None]
  - STAPHYLOCOCCAL INFECTION [None]
  - VOMITING [None]
